FAERS Safety Report 8413907-5 (Version None)
Quarter: 2012Q2

REPORT INFORMATION
  Report Type: 
  Country: None (occurrence: None)
  Receive Date: 20120323
  Receipt Date: 20110509
  Transmission Date: 20120825
  Serious: Yes (Hospitalization)
  Sender: FDA-Public Use
  Company Number: 163-21880-11051134

PATIENT
  Sex: Female

DRUGS (3)
  1. REVLIMID [Suspect]
     Indication: MULTIPLE MYELOMA
     Dosage: 5 MG, 1 IN 1 D, PO, 15 MG X 21, 5 MG X 7, PO, 10 MG, 1 IN 1 D, PO
     Route: 048
     Dates: start: 20081101
  2. REVLIMID [Suspect]
     Indication: MULTIPLE MYELOMA
     Dosage: 5 MG, 1 IN 1 D, PO, 15 MG X 21, 5 MG X 7, PO, 10 MG, 1 IN 1 D, PO
     Route: 048
     Dates: start: 20101101
  3. REVLIMID [Suspect]
     Indication: MULTIPLE MYELOMA
     Dosage: 5 MG, 1 IN 1 D, PO, 15 MG X 21, 5 MG X 7, PO, 10 MG, 1 IN 1 D, PO
     Route: 048
     Dates: start: 20100301

REACTIONS (1)
  - PNEUMONIA [None]
